FAERS Safety Report 13778488 (Version 1)
Quarter: 2017Q3

REPORT INFORMATION
  Report Type: Spontaneous
  Country: JP (occurrence: JP)
  Receive Date: 20170721
  Receipt Date: 20170721
  Transmission Date: 20171127
  Serious: Yes (Other)
  Sender: FDA-Public Use
  Company Number: JP-ROCHE-1965736

PATIENT
  Sex: Female

DRUGS (2)
  1. PREDONINE [Concomitant]
     Active Substance: PREDNISOLONE
  2. XOLAIR [Suspect]
     Active Substance: OMALIZUMAB
     Indication: PRODUCT USED FOR UNKNOWN INDICATION
     Dosage: UNK
     Route: 058

REACTIONS (5)
  - Tremor [Unknown]
  - Cough [Unknown]
  - Internal haemorrhage [Unknown]
  - Asthma [Unknown]
  - Fall [Unknown]
